FAERS Safety Report 4472596-5 (Version None)
Quarter: 2004Q4

REPORT INFORMATION
  Report Type: 
  Country: None (occurrence: None)
  Receive Date: 20041008
  Receipt Date: 20041004
  Transmission Date: 20050328
  Serious: Yes (Other)
  Sender: FDA-Public Use
  Company Number: 200412805GDS

PATIENT
  Age: 33 Year
  Sex: Male

DRUGS (9)
  1. NIFEDIPINE [Suspect]
     Dosage: 60 MG, TOTAL DAILY, UNK
  2. CITALOPRAM [Suspect]
     Dosage: 20 MG, TOTAL DAILY, UNK
  3. METHADONE HCL [Suspect]
     Dosage: 80 MG, TOTAL DAILY, UNK
  4. BUTAMIRATE [Concomitant]
  5. MIDAZOLAM HCL [Concomitant]
  6. OMEPRAZOLE [Concomitant]
  7. OXAZEPAM [Concomitant]
  8. ROFECOXIB [Concomitant]
  9. MORPHINE [Concomitant]

REACTIONS (3)
  - DRUG INTERACTION [None]
  - ELECTROCARDIOGRAM QT PROLONGED [None]
  - VENTRICULAR TACHYCARDIA [None]
